FAERS Safety Report 16673121 (Version 1)
Quarter: 2019Q3

REPORT INFORMATION
  Report Type: Spontaneous
  Country: AR (occurrence: AR)
  Receive Date: 20190806
  Receipt Date: 20190806
  Transmission Date: 20191004
  Serious: Yes (Other)
  Sender: FDA-Public Use
  Company Number: AR-PFIZER INC-2019330297

PATIENT
  Sex: Female

DRUGS (1)
  1. PALBOCICLIB [Suspect]
     Active Substance: PALBOCICLIB
     Dosage: UNK

REACTIONS (1)
  - Pleural effusion [Unknown]
